FAERS Safety Report 4830873-X (Version None)
Quarter: 2005Q4

REPORT INFORMATION
  Report Type: 
  Country: None (occurrence: None)
  Receive Date: 20051117
  Receipt Date: 20050930
  Transmission Date: 20060501
  Serious: Yes (Death, Hospitalization, Other)
  Sender: FDA-Public Use
  Company Number: US-MERCK-0510USA00702

PATIENT
  Age: 77 Year
  Sex: Male
  Weight: 99 kg

DRUGS (6)
  1. VIOXX [Suspect]
     Indication: ARTHRITIS
     Route: 048
  2. VIOXX [Suspect]
     Route: 048
     Dates: end: 20030702
  3. FLOMAX [Concomitant]
     Route: 065
  4. PROSCAR [Concomitant]
     Route: 065
  5. WARFARIN [Concomitant]
     Route: 065
  6. ZOCOR [Concomitant]
     Route: 065

REACTIONS (6)
  - BLADDER DISORDER [None]
  - CATARACT [None]
  - CATARACT OPERATION [None]
  - CYSTITIS [None]
  - DEATH [None]
  - MYOCARDIAL INFARCTION [None]
